FAERS Safety Report 9176160 (Version 1)
Quarter: 2013Q1

REPORT INFORMATION
  Report Type: Spontaneous
  Country: NL (occurrence: NL)
  Receive Date: 20130321
  Receipt Date: 20130321
  Transmission Date: 20140127
  Serious: Yes (Other)
  Sender: FDA-Public Use
  Company Number: PHHY2013NL025098

PATIENT
  Age: 63 Year
  Sex: Female

DRUGS (6)
  1. METHOTREXATE [Suspect]
     Indication: TAKAYASU^S ARTERITIS
  2. PREDNISONE [Suspect]
     Dosage: 3.75 MG, QD
  3. AZATHIOPRINE [Suspect]
     Dosage: 50 MG, BID
  4. PREDNISOLONE [Suspect]
     Indication: TAKAYASU^S ARTERITIS
  5. INFLIXIMAB [Suspect]
  6. TOCILIZUMAB [Suspect]
     Dosage: 8 MG/KG, UNK

REACTIONS (13)
  - Lung abscess [Recovered/Resolved]
  - Cough [Recovered/Resolved]
  - Dyspnoea [Recovered/Resolved]
  - Night sweats [Recovered/Resolved]
  - Chills [Recovered/Resolved]
  - Chest pain [Recovered/Resolved]
  - Osteitis [Recovered/Resolved]
  - Toothache [Recovered/Resolved]
  - Lung consolidation [Recovered/Resolved]
  - Pulmonary necrosis [Recovered/Resolved]
  - Lymphadenopathy [Recovered/Resolved]
  - Tooth abscess [Recovered/Resolved]
  - Gastrointestinal disorder [Recovered/Resolved]
